FAERS Safety Report 11776748 (Version 1)
Quarter: 2015Q4

REPORT INFORMATION
  Report Type: Report from Study
  Country: AT (occurrence: AT)
  Receive Date: 20151125
  Receipt Date: 20151125
  Transmission Date: 20160304
  Serious: Yes (Hospitalization)
  Sender: FDA-Public Use
  Company Number: AT-INCYTE CORPORATION-2014IN003351

PATIENT
  Age: 79 Year
  Sex: Male
  Weight: 72 kg

DRUGS (21)
  1. JAKAFI [Suspect]
     Active Substance: RUXOLITINIB
     Indication: MYELOFIBROSIS
     Dosage: 10 MG, BID
     Route: 048
     Dates: start: 20131115
  2. JAKAFI [Suspect]
     Active Substance: RUXOLITINIB
     Dosage: 5 MG, UNK
     Route: 048
     Dates: start: 201401
  3. SINTROM [Concomitant]
     Active Substance: ACENOCOUMAROL
     Route: 065
  4. EBRANTIL [Concomitant]
     Active Substance: URAPIDIL
     Dosage: 1 DF, QD
     Route: 065
  5. DILATREND [Concomitant]
     Active Substance: CARVEDILOL
     Indication: PRODUCT USED FOR UNKNOWN INDICATION
     Dosage: UNKNOWN
  6. JAKAFI [Suspect]
     Active Substance: RUXOLITINIB
     Dosage: 25 MG, UNK (10-0-15 MG)
     Route: 048
     Dates: start: 20131115
  7. JAKAFI [Suspect]
     Active Substance: RUXOLITINIB
     Dosage: 20 MG, QD
     Route: 048
  8. EBRANTIL [Concomitant]
     Active Substance: URAPIDIL
     Indication: PRODUCT USED FOR UNKNOWN INDICATION
     Dosage: 30 MG, UNK
  9. PASSEDAN [Concomitant]
     Route: 065
  10. XALACOM [Concomitant]
     Active Substance: LATANOPROST\TIMOLOL MALEATE
     Indication: PRODUCT USED FOR UNKNOWN INDICATION
     Dosage: UNKNOWN
  11. JAKAFI [Suspect]
     Active Substance: RUXOLITINIB
     Dosage: 5 MG, BID (2-0-2)
     Route: 048
     Dates: start: 20140618
  12. XALATAN [Concomitant]
     Active Substance: LATANOPROST
     Route: 065
  13. XALACOM [Concomitant]
     Active Substance: LATANOPROST\TIMOLOL MALEATE
     Route: 065
  14. JAKAFI [Suspect]
     Active Substance: RUXOLITINIB
     Dosage: 10 MG, QD
     Route: 048
     Dates: start: 20131218
  15. JAKAFI [Suspect]
     Active Substance: RUXOLITINIB
     Dosage: 15 MG UNK
     Route: 048
     Dates: start: 20151115
  16. SINTROM [Concomitant]
     Active Substance: ACENOCOUMAROL
     Indication: PRODUCT USED FOR UNKNOWN INDICATION
     Dosage: UNKNOWN
  17. AMLODIPIN//AMLODIPINE [Concomitant]
     Dosage: 10 MG, QD
  18. PASSEDAN [Concomitant]
     Indication: PRODUCT USED FOR UNKNOWN INDICATION
     Dosage: UNKNOWN
  19. DILATREND [Concomitant]
     Active Substance: CARVEDILOL
     Dosage: 25 MG, BID
     Route: 065
  20. AMLODIPIN//AMLODIPINE [Concomitant]
     Indication: PRODUCT USED FOR UNKNOWN INDICATION
     Dosage: UNKNOWN
     Route: 065
  21. XALATAN [Concomitant]
     Active Substance: LATANOPROST
     Indication: PRODUCT USED FOR UNKNOWN INDICATION
     Dosage: UNKNOWN

REACTIONS (12)
  - Blood lactate dehydrogenase increased [Unknown]
  - Dyspnoea [Recovered/Resolved]
  - Pneumonia [Unknown]
  - Anaemia [Recovered/Resolved]
  - Anaemia [Unknown]
  - Ventricular extrasystoles [Unknown]
  - Dehydration [Unknown]
  - Atrial fibrillation [Recovered/Resolved]
  - Arrhythmia [Unknown]
  - Pyrexia [Recovered/Resolved]
  - Gout [Recovered/Resolved]
  - General physical health deterioration [Recovered/Resolved]

NARRATIVE: CASE EVENT DATE: 20140726
